FAERS Safety Report 7346648-6 (Version None)
Quarter: 2011Q1

REPORT INFORMATION
  Report Type: 
  Country: None (occurrence: None)
  Receive Date: 20110311
  Receipt Date: 20110228
  Transmission Date: 20110831
  Serious: Yes (Hospitalization)
  Sender: FDA-Public Use
  Company Number: FI-EISAI INC-E3810-04494-SPO-FI

PATIENT
  Sex: Male

DRUGS (3)
  1. PARIET (RABEPRAZOLE) [Suspect]
     Dosage: UNKNOWN
     Route: 048
     Dates: end: 20110216
  2. SIMVASTATIN [Concomitant]
  3. CIPRALEX [Concomitant]

REACTIONS (2)
  - PYREXIA [None]
  - URTICARIA [None]
